FAERS Safety Report 4409791-7 (Version None)
Quarter: 2004Q3

REPORT INFORMATION
  Report Type: 
  Country: None (occurrence: None)
  Receive Date: 20040726
  Receipt Date: 20040716
  Transmission Date: 20050211
  Serious: Yes (Other)
  Sender: FDA-Public Use
  Company Number: HQWYE181216JUL04

PATIENT
  Age: 26 Year
  Sex: Female

DRUGS (1)
  1. MINOCYCIN (MINOCYCLINE, INJECTION) [Suspect]
     Dosage: INTRAVENOUS
     Route: 042
     Dates: start: 20010501

REACTIONS (1)
  - OCULOMUCOCUTANEOUS SYNDROME [None]
